FAERS Safety Report 5445811-9 (Version None)
Quarter: 2007Q3

REPORT INFORMATION
  Report Type: 
  Country: None (occurrence: None)
  Receive Date: 20070907
  Receipt Date: 20070905
  Transmission Date: 20080115
  Serious: Yes (Life-Threatening, Hospitalization, Other)
  Sender: FDA-Public Use
  Company Number: PHBS2007GE14586

PATIENT
  Age: 26 Year
  Sex: Female

DRUGS (3)
  1. KETOROLAC TROMETHAMINE [Suspect]
  2. METAMIZOLE [Suspect]
  3. DICLOFENAC [Suspect]
     Indication: PANCREATITIS ACUTE

REACTIONS (14)
  - ABORTION INDUCED [None]
  - ACUTE POLYNEUROPATHY [None]
  - BULBAR PALSY [None]
  - CHROMATURIA [None]
  - DRUG EXPOSURE DURING PREGNANCY [None]
  - DYSPNOEA [None]
  - ELECTRONEUROMYOGRAPHY [None]
  - EMOTIONAL DISORDER [None]
  - EPILEPSY [None]
  - METRORRHAGIA [None]
  - PSYCHOTIC DISORDER [None]
  - QUADRIPLEGIA [None]
  - URINE DELTA AMINOLEVULINATE INCREASED [None]
  - URINE PORPHOBILINOGEN INCREASED [None]
